FAERS Safety Report 10661406 (Version 1)
Quarter: 2014Q4

REPORT INFORMATION
  Report Type: Spontaneous
  Country: TW (occurrence: None)
  Receive Date: 20141216
  Receipt Date: 20141216
  Transmission Date: 20150529
  Serious: Yes (Other)
  Sender: FDA-Public Use
  Company Number: FK201406101

PATIENT
  Age: 48 Year
  Sex: Female

DRUGS (1)
  1. HYDRALAZINE INJECTION [Suspect]
     Active Substance: HYDRALAZINE HYDROCHLORIDE
     Indication: PRODUCT USED FOR UNKNOWN INDICATION
     Dosage: 50 MG, 50 MG TWICE DAILY, UKNOWN 3 MONTHS PREVIOUSLY-UKNOWN

REACTIONS (2)
  - Lupus-like syndrome [None]
  - Noninfectious peritonitis [None]
